FAERS Safety Report 7430742-5 (Version None)
Quarter: 2011Q2

REPORT INFORMATION
  Report Type: 
  Country: None (occurrence: None)
  Receive Date: 20110421
  Receipt Date: 20110412
  Transmission Date: 20111010
  Serious: Yes (Hospitalization)
  Sender: FDA-Public Use
  Company Number: CA-US-EMD SERONO, INC.-7007447

PATIENT
  Sex: Male

DRUGS (19)
  1. HEART MEDICATION [Concomitant]
  2. CALCIUM [Concomitant]
  3. ATORVASTATIN [Concomitant]
  4. REBIF [Suspect]
     Indication: RELAPSING-REMITTING MULTIPLE SCLEROSIS
     Dates: start: 20071114
  5. BACLOFEN [Concomitant]
  6. MORPHINE [Concomitant]
  7. RABEPRAZO [Concomitant]
  8. LORAZEPAM [Concomitant]
  9. MODAFINIL [Concomitant]
  10. ASPIRIN [Concomitant]
  11. FOLIC ACID [Concomitant]
  12. METOPROLOL TARTRATE [Concomitant]
  13. VITAMIN B-12 [Concomitant]
  14. REBIF [Suspect]
  15. CARBAMAZEPINE [Concomitant]
  16. VITAMIN D [Concomitant]
  17. AMITRIPTYLINE HCL [Concomitant]
  18. CALCIUM MAGNESIUM [Concomitant]
  19. TIZANIDINE [Concomitant]

REACTIONS (1)
  - MYOCARDIAL INFARCTION [None]
